FAERS Safety Report 7577096-1 (Version None)
Quarter: 2011Q2

REPORT INFORMATION
  Report Type: 
  Country: None (occurrence: None)
  Receive Date: 20110624
  Receipt Date: 20110624
  Transmission Date: 20111010
  Serious: Yes (Other)
  Sender: FDA-Public Use
  Company Number: None

PATIENT
  Age: 60 Year
  Sex: Male
  Weight: 103.4201 kg

DRUGS (1)
  1. FEBUXOSTAT 40 MG TA IN HERKEDA [Suspect]
     Indication: GOUT
     Dosage: 40 MG BID PO
     Route: 048
     Dates: start: 20090814, end: 20110520

REACTIONS (1)
  - RASH PRURITIC [None]
